FAERS Safety Report 7913804-5 (Version None)
Quarter: 2011Q4

REPORT INFORMATION
  Report Type: 
  Country: None (occurrence: None)
  Receive Date: 20111115
  Receipt Date: 20111107
  Transmission Date: 20120403
  Serious: Yes (Hospitalization)
  Sender: FDA-Public Use
  Company Number: US-VIROPHARMA INCORPORATED-20111025CINRY2396

PATIENT
  Sex: Female
  Weight: 138.5 kg

DRUGS (7)
  1. BENADRYL [Concomitant]
     Indication: HYPERSENSITIVITY
     Route: 048
     Dates: start: 20100127
  2. PROMETHAZINE [Concomitant]
     Indication: VOMITING
  3. ALBUTEROL [Concomitant]
     Indication: WHEEZING
     Dosage: 2 PUFFS
     Dates: start: 20100127
  4. SYNTHROID [Concomitant]
     Indication: AUTOIMMUNE THYROIDITIS
     Route: 048
     Dates: start: 20090109
  5. LOMOTIL [Concomitant]
     Indication: DIARRHOEA
     Dosage: 0.025 MG -2.5 MG (2 TABLETS)
     Route: 048
     Dates: start: 20090605
  6. PROMETHAZINE [Concomitant]
     Indication: NAUSEA
     Route: 048
     Dates: start: 20100826
  7. CINRYZE [Suspect]
     Indication: HEREDITARY ANGIOEDEMA
     Dates: start: 20090101

REACTIONS (14)
  - MEDICAL DEVICE COMPLICATION [None]
  - URTICARIA [None]
  - STRESS [None]
  - HEART RATE ABNORMAL [None]
  - PALPITATIONS [None]
  - HEREDITARY ANGIOEDEMA [None]
  - OEDEMA PERIPHERAL [None]
  - VENTRICULAR EXTRASYSTOLES [None]
  - CATHETER SITE INFECTION [None]
  - OFF LABEL USE [None]
  - ANGIOEDEMA [None]
  - DRUG DOSE OMISSION [None]
  - URINARY TRACT INFECTION [None]
  - CHEST DISCOMFORT [None]
